FAERS Safety Report 7630326-X (Version None)
Quarter: 2011Q3

REPORT INFORMATION
  Report Type: 
  Country: None (occurrence: None)
  Receive Date: 20110722
  Receipt Date: 20110714
  Transmission Date: 20111222
  Serious: Yes (Hospitalization, Other)
  Sender: FDA-Public Use
  Company Number: US-BAYER-201041458NA

PATIENT
  Age: 35 Year
  Sex: Female
  Weight: 181.41 kg

DRUGS (3)
  1. YASMIN [Suspect]
     Indication: ACNE
     Dosage: UNK
     Dates: start: 20040101, end: 20090101
  2. IBUPROFEN (ADVIL) [Concomitant]
  3. NSAID'S [Concomitant]

REACTIONS (3)
  - MYOCARDIAL INFARCTION [None]
  - CHOLELITHIASIS [None]
  - PAIN [None]
